FAERS Safety Report 13635522 (Version 1)
Quarter: 2017Q2

REPORT INFORMATION
  Report Type: Spontaneous
  Country: US (occurrence: US)
  Receive Date: 20170531
  Receipt Date: 20170531
  Transmission Date: 20170830
  Serious: No
  Sender: FDA-Public Use
  Company Number: US-ASTELLAS-1721794

PATIENT
  Age: 56 Year
  Sex: Female

DRUGS (10)
  1. AMOXICILLIN/CLAVULANATE [Concomitant]
     Active Substance: AMOXICILLIN\CLAVULANATE POTASSIUM
  2. NYSTATIN. [Concomitant]
     Active Substance: NYSTATIN
  3. TARCEVA [Suspect]
     Active Substance: ERLOTINIB HYDROCHLORIDE
     Indication: LUNG NEOPLASM MALIGNANT
     Route: 048
     Dates: start: 20130712
  4. CLINDAMYCIN PHOSPHATE. [Concomitant]
     Active Substance: CLINDAMYCIN PHOSPHATE
  5. SULFACETAMIDE SODIUM. [Concomitant]
     Active Substance: SULFACETAMIDE SODIUM
  6. LEVETIRACETAM. [Concomitant]
     Active Substance: LEVETIRACETAM
  7. DESOXIMETASONE. [Concomitant]
     Active Substance: DESOXIMETASONE
  8. TRAZODONE HYDROCHLORIDE. [Concomitant]
     Active Substance: TRAZODONE HYDROCHLORIDE
  9. CIPRODEX (UNITED STATES) [Concomitant]
  10. NYSTOP [Concomitant]
     Active Substance: NYSTATIN

REACTIONS (1)
  - Dermatitis acneiform [Not Recovered/Not Resolved]

NARRATIVE: CASE EVENT DATE: 20130712
